FAERS Safety Report 19666481 (Version 1)
Quarter: 2021Q3

REPORT INFORMATION
  Report Type: Spontaneous
  Country: HR (occurrence: HR)
  Receive Date: 20210806
  Receipt Date: 20210806
  Transmission Date: 20211014
  Serious: Yes (Hospitalization, Other)
  Sender: FDA-Public Use
  Company Number: HR-SUN PHARMACEUTICAL INDUSTRIES LTD-2021R1-306799

PATIENT
  Age: 46 Year
  Sex: Female

DRUGS (16)
  1. PREDNISONE. [Interacting]
     Active Substance: PREDNISONE
     Indication: PRODUCT USED FOR UNKNOWN INDICATION
     Dosage: 60 MILLIGRAM, DAILY
     Route: 048
  2. FENOFIBRATE/SIMVASTATIN [Interacting]
     Active Substance: FENOFIBRATE\SIMVASTATIN
     Indication: PRODUCT USED FOR UNKNOWN INDICATION
     Dosage: 145/20 MILLIGRAM
     Route: 065
  3. METHYLPREDNISOLONE. [Interacting]
     Active Substance: METHYLPREDNISOLONE
     Indication: RENAL IMPAIRMENT
     Dosage: 250 MILLIGRAM, DAILY
     Route: 042
  4. CALCIUM CARBONATE. [Interacting]
     Active Substance: CALCIUM CARBONATE
     Indication: PRODUCT USED FOR UNKNOWN INDICATION
     Dosage: 3 GRAM, DAILY
     Route: 048
  5. ATORVASTATIN [Suspect]
     Active Substance: ATORVASTATIN
     Indication: DYSLIPIDAEMIA
     Dosage: 20 MILLIGRAM, DAILY
     Route: 048
  6. CALCITRIOL. [Interacting]
     Active Substance: CALCITRIOL
     Indication: PRODUCT USED FOR UNKNOWN INDICATION
     Dosage: 0.25 MICROGRAM, QOD
     Route: 048
  7. FUROSEMIDE. [Interacting]
     Active Substance: FUROSEMIDE
     Indication: PRODUCT USED FOR UNKNOWN INDICATION
     Dosage: 40 MILLIGRAM, DAILY
     Route: 048
  8. CEFTRIAXONE. [Interacting]
     Active Substance: CEFTRIAXONE
     Indication: URINARY TRACT INFECTION
  9. DICLOFENAC [Interacting]
     Active Substance: DICLOFENAC
     Dosage: 150?200 MILLIGRAM
     Route: 065
  10. PROPRANOLOL [Interacting]
     Active Substance: PROPRANOLOL HYDROCHLORIDE
     Indication: MIGRAINE
     Dosage: 60 MILLIGRAM, DAILY
     Route: 048
  11. PROPRANOLOL [Interacting]
     Active Substance: PROPRANOLOL HYDROCHLORIDE
     Dosage: 60 MILLIGRAM, DAILY
     Route: 048
  12. CEFTRIAXONE. [Interacting]
     Active Substance: CEFTRIAXONE
     Indication: PNEUMONIA
     Dosage: 1 GRAM, DAILY
     Route: 042
  13. FENOFIBRATE/SIMVASTATIN [Interacting]
     Active Substance: FENOFIBRATE\SIMVASTATIN
     Dosage: 145/40 MILLIGRAM
     Route: 065
  14. PANTOPRAZOLE [Interacting]
     Active Substance: PANTOPRAZOLE
     Indication: PRODUCT USED FOR UNKNOWN INDICATION
     Dosage: 40 MILLIGRAM, DAILY
     Route: 048
  15. DICLOFENAC [Interacting]
     Active Substance: DICLOFENAC
     Indication: MIGRAINE
     Route: 065
  16. METHYLPREDNISOLONE. [Interacting]
     Active Substance: METHYLPREDNISOLONE
     Indication: RENAL IMPAIRMENT
     Dosage: UNK
     Route: 048

REACTIONS (4)
  - Hepatotoxicity [Unknown]
  - Myalgia [Unknown]
  - Nephropathy toxic [Unknown]
  - Drug interaction [Unknown]
